FAERS Safety Report 9912611 (Version 1)
Quarter: 2014Q1

REPORT INFORMATION
  Report Type: Spontaneous
  Country: US (occurrence: None)
  Receive Date: 20140218
  Receipt Date: 20140218
  Transmission Date: 20141002
  Serious: Yes (Other)
  Sender: FDA-Public Use
  Company Number: None

PATIENT
  Age: 49 Year
  Sex: Female

DRUGS (10)
  1. FIRAZYR [Suspect]
     Indication: ENZYME ABNORMALITY
     Dosage: PRN
     Route: 058
     Dates: start: 20130604
  2. ALPRAZOLAM [Suspect]
  3. METHYLPREDNISOLONE [Concomitant]
  4. DANAZOL [Concomitant]
  5. BUPROPION [Concomitant]
  6. VIVELLE-DOT [Concomitant]
  7. CINRYZE [Concomitant]
  8. ONDANSETRON [Concomitant]
  9. OMEPRAZOLE [Concomitant]
  10. TOPIRAMATE [Concomitant]

REACTIONS (2)
  - Abdominal pain [None]
  - Abdominal distension [None]
